FAERS Safety Report 18648463 (Version 1)
Quarter: 2020Q4

REPORT INFORMATION
  Report Type: Spontaneous
  Country: US (occurrence: US)
  Receive Date: 20201221
  Receipt Date: 20201221
  Transmission Date: 20210114
  Serious: Yes (Hospitalization)
  Sender: FDA-Public Use
  Company Number: None

PATIENT
  Age: 20 Year
  Sex: Female

DRUGS (2)
  1. AZITHROMYCIN 500MG TAB [Suspect]
     Active Substance: AZITHROMYCIN
     Indication: CYSTIC FIBROSIS
     Dosage: ?          OTHER FREQUENCY:M-W-F;?
     Route: 048
     Dates: start: 20130601
  2. PULMOZYME [Suspect]
     Active Substance: DORNASE ALFA
     Indication: CYSTIC FIBROSIS
     Route: 055
     Dates: start: 20130830

REACTIONS (3)
  - Dyspnoea [None]
  - Therapy interrupted [None]
  - Memory impairment [None]

NARRATIVE: CASE EVENT DATE: 20201204
